FAERS Safety Report 15953648 (Version 1)
Quarter: 2019Q1

REPORT INFORMATION
  Report Type: Spontaneous
  Country: US (occurrence: US)
  Receive Date: 20190213
  Receipt Date: 20190213
  Transmission Date: 20190417
  Serious: No
  Sender: FDA-Public Use
  Company Number: US-B.I. PHARMACEUTICALS,INC./RIDGEFIELD-2019-BI-005017

PATIENT

DRUGS (6)
  1. METHOTREXATE. [Concomitant]
     Active Substance: METHOTREXATE
     Indication: PSORIATIC ARTHROPATHY
     Dosage: REASON FOR DISCONTINUATION: INEFFICACY
     Route: 065
     Dates: start: 201208, end: 201408
  2. COSENTYX [Concomitant]
     Active Substance: SECUKINUMAB
     Indication: PSORIATIC ARTHROPATHY
     Dosage: REASON FOR DISCONTINUATION: INEFFICACY
     Route: 065
     Dates: start: 201702, end: 201705
  3. XELJANZ [Concomitant]
     Active Substance: TOFACITINIB CITRATE
     Indication: PRODUCT USED FOR UNKNOWN INDICATION
     Dosage: XELJANZ XR ONCE DAILY 11 MG PO, QUANTITY 30 (30 DAYS), 3 REFILLS,
     Route: 048
  4. HUMIRA [Concomitant]
     Active Substance: ADALIMUMAB
     Indication: PSORIATIC ARTHROPATHY
     Dosage: REASON FOR DISCONTINUATION: INEFFICACY
     Route: 065
     Dates: start: 201202, end: 201702
  5. ENBREL [Concomitant]
     Active Substance: ETANERCEPT
     Indication: PSORIATIC ARTHROPATHY
     Dosage: REASON FOR DISCONTINUATION: INEFFICACY
     Route: 065
     Dates: start: 201605, end: 201705
  6. MOBIC [Suspect]
     Active Substance: MELOXICAM
     Indication: PRODUCT USED FOR UNKNOWN INDICATION
     Route: 065

REACTIONS (1)
  - Multiple allergies [Unknown]
